FAERS Safety Report 11838660 (Version 1)
Quarter: 2015Q4

REPORT INFORMATION
  Report Type: Spontaneous
  Country: US (occurrence: US)
  Receive Date: 20151215
  Receipt Date: 20151215
  Transmission Date: 20160305
  Serious: Yes (Hospitalization)
  Sender: FDA-Public Use
  Company Number: US-SA-2015SA005476

PATIENT
  Age: 69 Year
  Sex: Female

DRUGS (9)
  1. BEVACIZUMAB [Suspect]
     Active Substance: BEVACIZUMAB
     Indication: BREAST CANCER METASTATIC
     Dosage: SOLUTION
     Route: 042
     Dates: start: 20070424
  2. AROMASIN [Concomitant]
     Active Substance: EXEMESTANE
  3. BEVACIZUMAB [Suspect]
     Active Substance: BEVACIZUMAB
     Indication: BREAST CANCER METASTATIC
     Dosage: SOLUTION
     Route: 042
     Dates: start: 20070424
  4. CELEBREX [Concomitant]
     Active Substance: CELECOXIB
  5. COUMADIN [Concomitant]
     Active Substance: WARFARIN SODIUM
  6. HYDROCHLOROTHIAZIDE/TRIAMTERENE [Concomitant]
  7. HALDOL [Concomitant]
     Active Substance: HALOPERIDOL
  8. PLAQUENIL [Concomitant]
     Active Substance: HYDROXYCHLOROQUINE SULFATE
  9. DOCETAXEL. [Suspect]
     Active Substance: DOCETAXEL
     Indication: BREAST CANCER METASTATIC
     Route: 065
     Dates: start: 20070424

REACTIONS (1)
  - Gastrointestinal haemorrhage [Recovered/Resolved]

NARRATIVE: CASE EVENT DATE: 20070905
